FAERS Safety Report 17463492 (Version 13)
Quarter: 2022Q2

REPORT INFORMATION
  Report Type: Report from Study
  Country: DE (occurrence: DE)
  Receive Date: 20200226
  Receipt Date: 20220408
  Transmission Date: 20220721
  Serious: Yes (Hospitalization)
  Sender: FDA-Public Use
  Company Number: DE-MYLANLABS-2020M1020608

PATIENT
  Age: 70 Year
  Sex: Male

DRUGS (20)
  1. DOXEPIN [Suspect]
     Active Substance: DOXEPIN
     Indication: Product used for unknown indication
     Dosage: 50 MILLIGRAM, QD (0-0-2)
     Route: 065
  2. DOXEPIN [Suspect]
     Active Substance: DOXEPIN
     Dosage: 100 MILLIGRAM, QD(0-0-2)
     Route: 065
  3. DOXEPIN [Suspect]
     Active Substance: DOXEPIN
     Dosage: 50 MILLIGRAM (0.5 DAY) (0-0-2)
     Route: 065
  4. DOXEPIN [Suspect]
     Active Substance: DOXEPIN
     Dosage: 50 MILLIGRAM (0-0-2)
     Route: 065
  5. OCREVUS [Suspect]
     Active Substance: OCRELIZUMAB
     Indication: Primary progressive multiple sclerosis
     Dosage: 300 MILLIGRAM
     Route: 042
     Dates: start: 20180613
  6. OCREVUS [Suspect]
     Active Substance: OCRELIZUMAB
     Dosage: 600 MILLIGRAM (156 DAYS)
     Route: 042
     Dates: start: 20181126
  7. OCREVUS [Suspect]
     Active Substance: OCRELIZUMAB
     Dosage: 2ND MAINTENANCE DOSE
     Route: 042
     Dates: start: 20190513
  8. OCREVUS [Suspect]
     Active Substance: OCRELIZUMAB
     Dosage: 600 MILLIGRAM
     Route: 042
     Dates: start: 202004
  9. OCREVUS [Suspect]
     Active Substance: OCRELIZUMAB
     Dosage: 600 MILLIGRAM
     Route: 042
     Dates: start: 202010
  10. OCREVUS [Suspect]
     Active Substance: OCRELIZUMAB
     Dosage: 600 MILLIGRAM
     Route: 042
     Dates: start: 20200608
  11. OCREVUS [Suspect]
     Active Substance: OCRELIZUMAB
     Dosage: 600 MILLIGRAM
     Route: 042
     Dates: start: 20200602
  12. OCREVUS [Suspect]
     Active Substance: OCRELIZUMAB
     Dosage: 600 MILLIGRAM
     Route: 042
     Dates: start: 20211027
  13. DALFAMPRIDINE [Suspect]
     Active Substance: DALFAMPRIDINE
     Indication: Product used for unknown indication
     Dosage: 2 DOSAGE FORM, QD(1-0-1)
     Route: 065
  14. DALFAMPRIDINE [Suspect]
     Active Substance: DALFAMPRIDINE
     Dosage: UNK UNK, BID (1-0-1)
     Route: 065
  15. DALFAMPRIDINE [Suspect]
     Active Substance: DALFAMPRIDINE
     Dosage: 10 MILLIGRAM, BID(1-0-1)
     Route: 065
  16. AMANTADINE [Concomitant]
     Active Substance: AMANTADINE
     Dosage: 200 MILLIGRAM, QD
     Route: 065
  17. AMANTADINE [Concomitant]
     Active Substance: AMANTADINE
     Dosage: 100 MILLIGRAM (0.5 DAY)
  18. LEVODOPA [Concomitant]
     Active Substance: LEVODOPA
     Dosage: 1 DOSAGE FORM, QD
     Route: 065
  19. TAMSULOSIN [Concomitant]
     Active Substance: TAMSULOSIN
     Dosage: 0.4 MILLIGRAM, QD
     Route: 065
  20. NEUPRO [Concomitant]
     Active Substance: ROTIGOTINE
     Dosage: UNK
     Route: 065

REACTIONS (16)
  - Bladder cancer [Not Recovered/Not Resolved]
  - Groin pain [Recovering/Resolving]
  - Swelling [Recovering/Resolving]
  - Inguinal hernia [Recovered/Resolved]
  - Muscular weakness [Recovered/Resolved]
  - Pain in extremity [Recovered/Resolved]
  - Gallbladder cancer [Recovered/Resolved]
  - Bladder cyst [Not Recovered/Not Resolved]
  - Balance disorder [Recovered/Resolved]
  - Contusion [Recovered/Resolved]
  - Headache [Recovered/Resolved]
  - Rib fracture [Recovered/Resolved]
  - Initial insomnia [Recovered/Resolved]
  - Fall [Unknown]
  - Back pain [Recovered/Resolved]
  - Gait disturbance [Not Recovered/Not Resolved]

NARRATIVE: CASE EVENT DATE: 20180613
